FAERS Safety Report 20596615 (Version 1)
Quarter: 2022Q1

REPORT INFORMATION
  Report Type: Report from Study
  Country: US (occurrence: US)
  Receive Date: 20220315
  Receipt Date: 20220315
  Transmission Date: 20220424
  Serious: Yes (Death, Other)
  Sender: FDA-Public Use
  Company Number: US-ADVANZ PHARMA-202201001422

PATIENT

DRUGS (6)
  1. CLONIDINE [Suspect]
     Active Substance: CLONIDINE
     Route: 048
  2. CLONIDINE [Suspect]
     Active Substance: CLONIDINE
     Route: 065
  3. NAPROXEN [Suspect]
     Active Substance: NAPROXEN
     Route: 048
  4. NAPROXEN [Suspect]
     Active Substance: NAPROXEN
     Route: 065
  5. ALCOHOL [Suspect]
     Active Substance: ALCOHOL
     Route: 048
  6. ALCOHOL [Suspect]
     Active Substance: ALCOHOL
     Route: 065

REACTIONS (1)
  - Completed suicide [Fatal]
